FAERS Safety Report 5753860-6 (Version None)
Quarter: 2008Q2

REPORT INFORMATION
  Report Type: 
  Country: None (occurrence: None)
  Receive Date: 20080530
  Receipt Date: 20080519
  Transmission Date: 20081010
  Serious: Yes (Hospitalization, Other)
  Sender: FDA-Public Use
  Company Number: FR-AMGEN-UK280996

PATIENT
  Sex: Female

DRUGS (3)
  1. ARANESP [Suspect]
     Indication: DRUG USE FOR UNKNOWN INDICATION
     Route: 058
     Dates: start: 20060111
  2. SPRYCEL [Suspect]
     Route: 048
     Dates: start: 20070802
  3. ASPIRIN [Concomitant]
     Dates: start: 20070501

REACTIONS (3)
  - CEREBROVASCULAR ACCIDENT [None]
  - DEEP VEIN THROMBOSIS [None]
  - THROMBOPHLEBITIS [None]
